FAERS Safety Report 11728448 (Version 1)
Quarter: 2015Q4

REPORT INFORMATION
  Report Type: Spontaneous
  Country: FR (occurrence: FR)
  Receive Date: 20151112
  Receipt Date: 20151112
  Transmission Date: 20160304
  Serious: Yes (Life-Threatening, Hospitalization, Other)
  Sender: FDA-Public Use
  Company Number: FR-BRISTOL-MYERS SQUIBB COMPANY-BMS-2015-075217

PATIENT
  Age: 88 Year
  Sex: Male

DRUGS (4)
  1. HEPARIN CALCIUM [Suspect]
     Active Substance: HEPARIN CALCIUM
     Indication: PULMONARY EMBOLISM
     Dosage: UNK
     Route: 058
     Dates: start: 201504, end: 201505
  2. CANDESARTAN [Concomitant]
     Active Substance: CANDESARTAN
     Indication: PRODUCT USED FOR UNKNOWN INDICATION
     Route: 065
  3. COUMADINE [Suspect]
     Active Substance: WARFARIN SODIUM
     Indication: PRODUCT USED FOR UNKNOWN INDICATION
     Dosage: UNK
     Route: 048
     Dates: end: 201505
  4. AMIODARONE [Concomitant]
     Active Substance: AMIODARONE
     Indication: PRODUCT USED FOR UNKNOWN INDICATION
     Route: 065

REACTIONS (10)
  - Polypectomy [Unknown]
  - Packed red blood cell transfusion [Unknown]
  - Anaemia [Recovering/Resolving]
  - Deep vein thrombosis [Unknown]
  - Rectal haemorrhage [Not Recovered/Not Resolved]
  - Polyp [Unknown]
  - Angiodysplasia [Unknown]
  - Pulmonary embolism [Unknown]
  - Oedema peripheral [Unknown]
  - Radiation proctitis [Unknown]

NARRATIVE: CASE EVENT DATE: 201504
